FAERS Safety Report 25632470 (Version 1)
Quarter: 2025Q3

REPORT INFORMATION
  Report Type: Spontaneous
  Country: EU (occurrence: EU)
  Receive Date: 20250801
  Receipt Date: 20250801
  Transmission Date: 20251020
  Serious: Yes (Other)
  Sender: MYLAN
  Company Number: EU-UCBSA-2025042424

PATIENT

DRUGS (8)
  1. LEVETIRACETAM [Suspect]
     Active Substance: LEVETIRACETAM
     Indication: Anxiety
  2. LEVETIRACETAM [Suspect]
     Active Substance: LEVETIRACETAM
     Indication: Depressive symptom
     Route: 065
  3. LEVETIRACETAM [Suspect]
     Active Substance: LEVETIRACETAM
     Route: 065
  4. LEVETIRACETAM [Suspect]
     Active Substance: LEVETIRACETAM
  5. BRIVARACETAM [Suspect]
     Active Substance: BRIVARACETAM
     Indication: Depressive symptom
  6. BRIVARACETAM [Suspect]
     Active Substance: BRIVARACETAM
     Indication: Anxiety
     Route: 065
  7. BRIVARACETAM [Suspect]
     Active Substance: BRIVARACETAM
     Route: 065
  8. BRIVARACETAM [Suspect]
     Active Substance: BRIVARACETAM

REACTIONS (3)
  - Psychotic behaviour [Unknown]
  - Mood swings [Unknown]
  - Off label use [Unknown]
